FAERS Safety Report 4802080-8 (Version None)
Quarter: 2005Q4

REPORT INFORMATION
  Report Type: 
  Country: None (occurrence: None)
  Receive Date: 20051012
  Receipt Date: 20050929
  Transmission Date: 20060501
  Serious: Yes (Other)
  Sender: FDA-Public Use
  Company Number: 217820

PATIENT
  Sex: Female

DRUGS (3)
  1. NUTROPIN [Suspect]
     Indication: TURNER'S SYNDROME
  2. GENOTROPIN [Suspect]
     Indication: TURNER'S SYNDROME
  3. ESTROGENIC HORM SUBSTANCES TAB [Concomitant]

REACTIONS (1)
  - HEPATIC ADENOMA [None]
